FAERS Safety Report 10161114 (Version 1)
Quarter: 2014Q2

REPORT INFORMATION
  Report Type: Spontaneous
  Country: BR (occurrence: BR)
  Receive Date: 20140508
  Receipt Date: 20140508
  Transmission Date: 20141212
  Serious: Yes (Disabling, Other)
  Sender: FDA-Public Use
  Company Number: BR-B.I. PHARMACEUTICALS,INC./RIDGEFIELD-2014-BI-20347BR

PATIENT
  Sex: Male

DRUGS (3)
  1. TRAYENTA [Suspect]
     Indication: TYPE 2 DIABETES MELLITUS
     Dosage: 5 MG
     Route: 065
     Dates: start: 20130606
  2. GLIFAGE [Suspect]
     Indication: TYPE 2 DIABETES MELLITUS
     Dosage: 2 G
     Route: 065
  3. DIAMICRON [Concomitant]
     Route: 065
     Dates: start: 20130515

REACTIONS (8)
  - Hypertension [Unknown]
  - Vision blurred [Unknown]
  - Diarrhoea [Unknown]
  - Headache [Unknown]
  - Flatulence [Unknown]
  - Chest discomfort [Unknown]
  - Abdominal discomfort [Unknown]
  - Blood glucose increased [Unknown]
